FAERS Safety Report 19968940 (Version 14)
Quarter: 2023Q4

REPORT INFORMATION
  Report Type: Spontaneous
  Country: CA (occurrence: CA)
  Receive Date: 20211019
  Receipt Date: 20231012
  Transmission Date: 20240109
  Serious: Yes (Other)
  Sender: FDA-Public Use
  Company Number: CA-PFIZER INC-202101325790

PATIENT
  Age: 67 Year
  Sex: Female
  Weight: 71 kg

DRUGS (18)
  1. RUXIENCE [Suspect]
     Active Substance: RITUXIMAB-PVVR
     Indication: Granulomatosis with polyangiitis
     Dosage: 700 MG, WEEKLY X 4 WEEKS
     Route: 042
     Dates: start: 20211005
  2. RUXIENCE [Suspect]
     Active Substance: RITUXIMAB-PVVR
     Indication: Microscopic polyangiitis
     Dosage: 700 MG, WEEKLY X 4 WEEKS
     Route: 042
     Dates: start: 20211005, end: 20211027
  3. RUXIENCE [Suspect]
     Active Substance: RITUXIMAB-PVVR
     Indication: Rheumatoid arthritis
     Dosage: 700 MG, WEEKLY X 4 WEEKS
     Route: 042
  4. RUXIENCE [Suspect]
     Active Substance: RITUXIMAB-PVVR
     Dosage: 700 MG, WEEKLY X 4 WEEKS
     Route: 042
     Dates: start: 20220419
  5. RUXIENCE [Suspect]
     Active Substance: RITUXIMAB-PVVR
     Dosage: 700 MG, WEEKLY X 4 WEEKS
     Route: 042
     Dates: start: 20220419, end: 20220614
  6. RUXIENCE [Suspect]
     Active Substance: RITUXIMAB-PVVR
     Dosage: 700 MG, WEEKLY X 4 WEEKS
     Route: 042
     Dates: start: 20220419
  7. RUXIENCE [Suspect]
     Active Substance: RITUXIMAB-PVVR
     Dosage: 700 MG, WEEKLY X 4 WEEKS
     Route: 042
     Dates: start: 20220530
  8. RUXIENCE [Suspect]
     Active Substance: RITUXIMAB-PVVR
     Dosage: 700 MG, WEEKLY X 4 WEEKS
     Route: 042
     Dates: start: 20220530
  9. RUXIENCE [Suspect]
     Active Substance: RITUXIMAB-PVVR
     Dosage: 700 MG, WEEKLY X 4 WEEKS
     Route: 042
     Dates: start: 20220614
  10. RUXIENCE [Suspect]
     Active Substance: RITUXIMAB-PVVR
     Dosage: 700 MG, WEEKLY X 4 WEEKS
     Route: 042
     Dates: start: 20230322
  11. RUXIENCE [Suspect]
     Active Substance: RITUXIMAB-PVVR
     Dosage: 700 MG, WEEKLY X 1 WEEK
     Route: 042
     Dates: start: 20230329
  12. RUXIENCE [Suspect]
     Active Substance: RITUXIMAB-PVVR
     Dosage: 700 MG, WEEKLY X 1 WEEK
     Route: 042
     Dates: start: 20230329
  13. RUXIENCE [Suspect]
     Active Substance: RITUXIMAB-PVVR
     Dosage: 700 MG, WEEKLY X 4 WEEKS
     Route: 042
     Dates: start: 20230404
  14. RUXIENCE [Suspect]
     Active Substance: RITUXIMAB-PVVR
     Dosage: 700 MG, WEEKLY X 4 WEEKS
     Route: 042
     Dates: start: 20230404
  15. RUXIENCE [Suspect]
     Active Substance: RITUXIMAB-PVVR
     Dosage: 700 MG, WEEKLY X 4 WEEKS
     Route: 042
     Dates: start: 20230404
  16. RUXIENCE [Suspect]
     Active Substance: RITUXIMAB-PVVR
     Dosage: 700 MG, WEEKLY X 4 WEEKS
     Route: 042
     Dates: start: 20230418
  17. RUXIENCE [Suspect]
     Active Substance: RITUXIMAB-PVVR
     Dosage: 700 MG, WEEKLY X 4 WEEKS
     Route: 042
     Dates: start: 20230418
  18. RUXIENCE [Suspect]
     Active Substance: RITUXIMAB-PVVR
     Dosage: 500MG WEEKLY X 4 (NOT YET STARTED )
     Route: 042

REACTIONS (19)
  - Oxygen saturation decreased [Unknown]
  - Asthma [Recovered/Resolved]
  - Blood pressure fluctuation [Recovered/Resolved]
  - Dyspnoea [Recovered/Resolved]
  - Therapeutic product effect incomplete [Unknown]
  - Heart rate decreased [Recovered/Resolved]
  - Poor venous access [Recovered/Resolved]
  - Chest discomfort [Recovered/Resolved]
  - Cough [Recovered/Resolved]
  - COVID-19 [Unknown]
  - Fatigue [Unknown]
  - Condition aggravated [Not Recovered/Not Resolved]
  - Dizziness [Not Recovered/Not Resolved]
  - Gait disturbance [Unknown]
  - Off label use [Unknown]
  - Intentional product use issue [Unknown]
  - Incorrect dose administered [Unknown]
  - Inappropriate schedule of product administration [Unknown]
  - Off label use [Unknown]

NARRATIVE: CASE EVENT DATE: 20211005
